APPROVED DRUG PRODUCT: VINORELBINE TARTRATE
Active Ingredient: VINORELBINE TARTRATE
Strength: EQ 10MG BASE/ML
Dosage Form/Route: INJECTABLE;INJECTION
Application: A202017 | Product #001 | TE Code: AP
Applicant: DR REDDYS LABORATORIES LTD
Approved: Sep 12, 2013 | RLD: No | RS: No | Type: RX